FAERS Safety Report 10991052 (Version 3)
Quarter: 2015Q3

REPORT INFORMATION
  Report Type: Spontaneous
  Country: JP (occurrence: JP)
  Receive Date: 20150406
  Receipt Date: 20150814
  Transmission Date: 20151125
  Serious: Yes (Other)
  Sender: FDA-Public Use
  Company Number: JP-SA-2015SA041488

PATIENT
  Age: 59 Year
  Sex: Female

DRUGS (4)
  1. PROTECADIN [Concomitant]
     Active Substance: LAFUTIDINE
  2. MAGLAX [Concomitant]
     Active Substance: MAGNESIUM OXIDE
  3. DELLEGRA [Suspect]
     Active Substance: FEXOFENADINE HYDROCHLORIDE\PSEUDOEPHEDRINE HYDROCHLORIDE
     Indication: RHINITIS ALLERGIC
     Route: 048
     Dates: start: 201503
  4. DELLEGRA [Suspect]
     Active Substance: FEXOFENADINE HYDROCHLORIDE\PSEUDOEPHEDRINE HYDROCHLORIDE
     Indication: RHINITIS ALLERGIC
     Route: 048

REACTIONS (5)
  - Nephrosclerosis [Unknown]
  - Nausea [Unknown]
  - Hypoaesthesia [Unknown]
  - Dysarthria [Unknown]
  - Tremor [Unknown]
